FAERS Safety Report 6147191-2 (Version None)
Quarter: 2009Q2

REPORT INFORMATION
  Report Type: 
  Country: None (occurrence: None)
  Receive Date: 20090407
  Receipt Date: 20080817
  Transmission Date: 20091009
  Serious: Yes (Death)
  Sender: FDA-Public Use
  Company Number: US-TYCO HEALTHCARE/MALLINCKRODT-T200801356

PATIENT

DRUGS (3)
  1. METHADOSE [Suspect]
     Indication: MIGRAINE
     Dates: start: 20040101, end: 20040101
  2. METHADOSE [Suspect]
     Indication: BACK PAIN
  3. XANAX [Suspect]
     Indication: SEDATIVE THERAPY

REACTIONS (2)
  - DEATH [None]
  - FEELING ABNORMAL [None]
